FAERS Safety Report 10958439 (Version 1)
Quarter: 2015Q1

REPORT INFORMATION
  Report Type: Spontaneous
  Country: US (occurrence: US)
  Receive Date: 20150326
  Receipt Date: 20150326
  Transmission Date: 20150721
  Serious: Yes (Hospitalization)
  Sender: FDA-Public Use
  Company Number: US-GLAXOSMITHKLINE-US2015039096

PATIENT
  Age: 52 Year
  Sex: Male

DRUGS (13)
  1. ADVAIR HFA [Suspect]
     Active Substance: FLUTICASONE PROPIONATE\SALMETEROL XINAFOATE
     Indication: BRONCHITIS
  2. FUROSEMIDE. [Concomitant]
     Active Substance: FUROSEMIDE
  3. NOVOLOG [Concomitant]
     Active Substance: INSULIN ASPART
  4. VENTOLIN [Suspect]
     Active Substance: ALBUTEROL SULFATE
     Indication: ASTHMA
     Dosage: 3 PUFF(S), PRN
     Route: 055
     Dates: start: 2013
  5. MELOXICAM. [Concomitant]
     Active Substance: MELOXICAM
  6. METFORMIN [Concomitant]
     Active Substance: METFORMIN HYDROCHLORIDE
  7. ORPHENADRINE [Concomitant]
     Active Substance: ORPHENADRINE
  8. NOVOLOG [Concomitant]
     Active Substance: INSULIN ASPART
  9. LISINOPRIL. [Concomitant]
     Active Substance: LISINOPRIL
  10. ADVAIR HFA [Suspect]
     Active Substance: FLUTICASONE PROPIONATE\SALMETEROL XINAFOATE
     Indication: ASTHMA
     Dosage: 1 PUFF(S), BID
     Route: 055
     Dates: start: 2013
  11. VENTOLIN [Suspect]
     Active Substance: ALBUTEROL SULFATE
     Indication: BRONCHITIS
  12. K-TAB [Concomitant]
     Active Substance: POTASSIUM CHLORIDE
  13. RANITIDINE [Concomitant]
     Active Substance: RANITIDINE\RANITIDINE HYDROCHLORIDE

REACTIONS (5)
  - Weight increased [Not Recovered/Not Resolved]
  - Wheezing [Not Recovered/Not Resolved]
  - Peripheral swelling [Not Recovered/Not Resolved]
  - Panic attack [Recovered/Resolved]
  - Dyspnoea [Not Recovered/Not Resolved]

NARRATIVE: CASE EVENT DATE: 201412
